FAERS Safety Report 9914778 (Version 2)
Quarter: 2014Q1

REPORT INFORMATION
  Report Type: Spontaneous
  Country: NL (occurrence: NL)
  Receive Date: 20140220
  Receipt Date: 20140220
  Transmission Date: 20141002
  Serious: Yes (Other)
  Sender: FDA-Public Use
  Company Number: PHHY2013NL116359

PATIENT
  Sex: Female
  Weight: 88 kg

DRUGS (5)
  1. TASIGNA [Suspect]
     Indication: CHRONIC MYELOID LEUKAEMIA
     Dosage: 150 MG, BID
     Route: 048
     Dates: start: 20120821
  2. TASIGNA [Suspect]
     Dosage: DOSE REDUCED
     Route: 048
     Dates: end: 20130919
  3. SIMVASTATINE [Concomitant]
     Dosage: 20 MG, QD
  4. CLONIDINE [Concomitant]
     Dosage: 0.02 MG, QD
     Dates: start: 20130501
  5. THYRAX [Concomitant]
     Dosage: 0.1 UKN, QD
     Dates: start: 20130109

REACTIONS (2)
  - Depression [Recovered/Resolved]
  - Fatigue [Recovered/Resolved]
